FAERS Safety Report 7984806-8 (Version None)
Quarter: 2011Q4

REPORT INFORMATION
  Report Type: 
  Country: None (occurrence: None)
  Receive Date: 20111216
  Receipt Date: 20110916
  Transmission Date: 20120403
  Serious: No
  Sender: FDA-Public Use
  Company Number: US-ALLERGAN-1112332US

PATIENT
  Age: 47 Year
  Sex: Female

DRUGS (1)
  1. LATISSE [Suspect]
     Indication: GROWTH OF EYELASHES
     Dosage: 1 GTT, QHS
     Dates: start: 20110701

REACTIONS (3)
  - SKIN HYPERPIGMENTATION [None]
  - EYE PRURITUS [None]
  - DRY EYE [None]
